FAERS Safety Report 5928785-3 (Version None)
Quarter: 2008Q4

REPORT INFORMATION
  Report Type: 
  Country: None (occurrence: None)
  Receive Date: 20081021
  Receipt Date: 20081008
  Transmission Date: 20090506
  Serious: Yes (Other)
  Sender: FDA-Public Use
  Company Number: 2008AL011236

PATIENT
  Age: 78 Year
  Sex: Female

DRUGS (3)
  1. AMLODIPINE BESYLATE [Suspect]
     Indication: HYPERTENSION
     Dosage: 2.5 MG, QD; PO
     Route: 048
     Dates: start: 20080101
  2. ENALAPRIL/HCT [Concomitant]
  3. BECLOMETHASONE DIPROPIONATE [Concomitant]

REACTIONS (3)
  - CATARACT [None]
  - MACULAR DEGENERATION [None]
  - VISUAL IMPAIRMENT [None]
